FAERS Safety Report 4666935-X (Version None)
Quarter: 2005Q2

REPORT INFORMATION
  Report Type: 
  Country: None (occurrence: None)
  Receive Date: 20050518
  Receipt Date: 20040831
  Transmission Date: 20051028
  Serious: Yes (Other)
  Sender: FDA-Public Use
  Company Number: 2004225816US

PATIENT
  Age: 21 Year
  Sex: Female

DRUGS (2)
  1. DEPO-PROVERA [Suspect]
     Indication: CONTRACEPTION
     Dosage: 150 MG/3 MONTHS, 1ST INJ. INTRAMUSCULAR
     Route: 030
     Dates: start: 20040326, end: 20040326
  2. DEPO-PROVERA [Suspect]
     Dates: start: 20040621, end: 20040621

REACTIONS (1)
  - UNINTENDED PREGNANCY [None]
